FAERS Safety Report 5347636-1 (Version None)
Quarter: 2007Q2

REPORT INFORMATION
  Report Type: 
  Country: None (occurrence: None)
  Receive Date: 20070604
  Receipt Date: 20070604
  Transmission Date: 20071010
  Serious: No
  Sender: FDA-Public Use
  Company Number: None

PATIENT
  Age: 82 Year
  Sex: Male
  Weight: 64.1 kg

DRUGS (12)
  1. HURRICAINE/BENZOCAINE SPRAY 20% [Suspect]
     Indication: INTUBATION
     Dosage: ONCE PO
     Route: 048
     Dates: start: 20070601, end: 20070601
  2. ASPIRIN [Concomitant]
  3. COREG [Concomitant]
  4. LOVENOX [Concomitant]
  5. GENTAMICIN [Concomitant]
  6. HYDROCHLOROTHIAZIDE [Concomitant]
  7. LISINOPRIL [Concomitant]
  8. PROTONOX [Concomitant]
  9. POTASSIUM CHLORIDE [Concomitant]
  10. ZOCOR [Concomitant]
  11. VANCOMYCIN HCL [Concomitant]
  12. 1/2 NS [Concomitant]

REACTIONS (1)
  - METHAEMOGLOBINAEMIA [None]
